FAERS Safety Report 4597228-7 (Version None)
Quarter: 2005Q1

REPORT INFORMATION
  Report Type: 
  Country: None (occurrence: None)
  Receive Date: 20050301
  Receipt Date: 20050215
  Transmission Date: 20050727
  Serious: Yes (Other)
  Sender: FDA-Public Use
  Company Number: 2005033250

PATIENT
  Age: 66 Year
  Sex: Female

DRUGS (7)
  1. HYDROXYZINE HCL [Suspect]
     Indication: ILL-DEFINED DISORDER
  2. CARBAMAZEPINE [Suspect]
     Indication: ILL-DEFINED DISORDER
  3. PALPIPAX (VALERIAN, MEPROBAMATE) [Suspect]
     Indication: ILL-DEFINED DISORDER
  4. CLONAZEPAM [Suspect]
     Indication: ILL-DEFINED DISORDER
  5. ACEPROMETAZINE (ACEPROMETAZINE) [Suspect]
     Indication: ILL-DEFINED DISORDER
  6. ZOLPIDEM TARTRATE [Suspect]
     Indication: ILL-DEFINED DISORDER
  7. LEVOTHYROXINE [Concomitant]

REACTIONS (5)
  - ANXIETY [None]
  - BLOOD CREATINE PHOSPHOKINASE INCREASED [None]
  - DYSKINESIA [None]
  - HYPERHIDROSIS [None]
  - VOMITING [None]
